FAERS Safety Report 6372980-9 (Version None)
Quarter: 2009Q3

REPORT INFORMATION
  Report Type: 
  Country: None (occurrence: None)
  Receive Date: 20090924
  Receipt Date: 20090331
  Transmission Date: 20100115
  Serious: Yes (Life-Threatening, Hospitalization)
  Sender: FDA-Public Use
  Company Number: US-ASTRAZENECA-2009AC00968

PATIENT
  Age: 34 Year
  Sex: Male

DRUGS (9)
  1. QUETIAPINE FUMARATE [Suspect]
  2. CARBAMAZEPINE [Concomitant]
  3. GUANFACINE HYDROCHLORIDE [Concomitant]
  4. VALPROIC ACID [Concomitant]
  5. LORAZEPAM [Concomitant]
     Indication: MOVEMENT DISORDER
  6. LORAZEPAM [Concomitant]
     Indication: OPSOCLONUS MYOCLONUS
  7. LORAZEPAM [Concomitant]
     Route: 042
  8. LORAZEPAM [Concomitant]
     Route: 042
  9. SODIUM CHLORIDE [Concomitant]
     Route: 042

REACTIONS (1)
  - NEUROLEPTIC MALIGNANT SYNDROME [None]
